FAERS Safety Report 5670330-4 (Version None)
Quarter: 2008Q1

REPORT INFORMATION
  Report Type: 
  Country: None (occurrence: None)
  Receive Date: 20080314
  Receipt Date: 20080314
  Transmission Date: 20080703
  Serious: Yes (Life-Threatening, Hospitalization)
  Sender: FDA-Public Use
  Company Number: None

PATIENT
  Sex: Female
  Weight: 75.7507 kg

DRUGS (2)
  1. MEGESTROL ACETATE [Suspect]
     Indication: DECREASED APPETITE
     Dosage: 7.5ML (300MG) DAILY PO
     Route: 048
     Dates: start: 20070809, end: 20071213
  2. MEGESTROL ACETATE [Suspect]
     Indication: WEIGHT DECREASED
     Dosage: 7.5ML (300MG) DAILY PO
     Route: 048
     Dates: start: 20070809, end: 20071213

REACTIONS (2)
  - DEEP VEIN THROMBOSIS [None]
  - OEDEMA PERIPHERAL [None]
